FAERS Safety Report 4748635-0 (Version None)
Quarter: 2005Q3

REPORT INFORMATION
  Report Type: 
  Country: None (occurrence: None)
  Receive Date: 20050817
  Receipt Date: 20050811
  Transmission Date: 20060218
  Serious: Yes (Hospitalization)
  Sender: FDA-Public Use
  Company Number: OXER20050038

PATIENT
  Age: 56 Year
  Sex: Male

DRUGS (6)
  1. OXYCODONE ER    20 MG       ENDO [Suspect]
     Indication: CANCER PAIN
     Dosage: 60 MG BID-TID PO
     Route: 048
     Dates: start: 20050601, end: 20050701
  2. OXYCONTIN [Suspect]
     Indication: CANCER PAIN
     Dosage: 10-40 MG BID-TID PO
     Route: 048
     Dates: start: 20050401, end: 20050701
  3. OXYFAST   PURDUE [Suspect]
     Indication: PAIN
     Dosage: 20 MG-40 MG,   Q1H PO
     Route: 048
     Dates: end: 20050701
  4. DURAGESIC-25 [Suspect]
     Indication: CANCER PAIN
     Dosage: TOP
     Route: 061
     Dates: end: 20050723
  5. DILAUDID [Suspect]
     Indication: CANCER PAIN
     Dosage: IV
     Route: 042
     Dates: end: 20050723
  6. HALDOL [Concomitant]

REACTIONS (7)
  - DRUG EFFECT DECREASED [None]
  - INADEQUATE ANALGESIA [None]
  - INTESTINAL OBSTRUCTION [None]
  - MOANING [None]
  - PAIN [None]
  - SELF-MEDICATION [None]
  - THERAPEUTIC RESPONSE UNEXPECTED WITH DRUG SUBSTITUTION [None]
